FAERS Safety Report 24325816 (Version 2)
Quarter: 2024Q4

REPORT INFORMATION
  Report Type: Report from Study
  Country: US (occurrence: US)
  Receive Date: 20240917
  Receipt Date: 20241001
  Transmission Date: 20250114
  Serious: Yes (Hospitalization)
  Sender: UCB
  Company Number: US-UCBSA-2024045120

PATIENT
  Age: 59 Year
  Sex: Male

DRUGS (1)
  1. ROZANOLIXIZUMAB [Suspect]
     Active Substance: ROZANOLIXIZUMAB
     Indication: Myasthenia gravis
     Dosage: UNK, WEEKLY (QW)
     Route: 058

REACTIONS (5)
  - Dyspnoea [Not Recovered/Not Resolved]
  - Asthenia [Not Recovered/Not Resolved]
  - Fatigue [Not Recovered/Not Resolved]
  - Headache [Not Recovered/Not Resolved]
  - Therapy interrupted [Unknown]

NARRATIVE: CASE EVENT DATE: 20240821
